FAERS Safety Report 8522640-0 (Version None)
Quarter: 2012Q3

REPORT INFORMATION
  Report Type: 
  Country: None (occurrence: None)
  Receive Date: 20120719
  Receipt Date: 20120717
  Transmission Date: 20120928
  Serious: Yes (Life-Threatening, Hospitalization, Other)
  Sender: FDA-Public Use
  Company Number: RU-ABBOTT-12P-251-0956610-00

PATIENT
  Age: 30 Year
  Sex: Female

DRUGS (1)
  1. ZEMPLAR [Suspect]
     Indication: HYPERPARATHYROIDISM SECONDARY
     Dosage: 2.5 MKG THREE TIMES A WEEK
     Route: 042
     Dates: start: 20120505, end: 20120523

REACTIONS (1)
  - RENAL HAEMATOMA [None]
